FAERS Safety Report 11457699 (Version 1)
Quarter: 2015Q3

REPORT INFORMATION
  Report Type: Spontaneous
  Country: NZ (occurrence: NZ)
  Receive Date: 20150904
  Receipt Date: 20150904
  Transmission Date: 20151125
  Serious: Yes (Other)
  Sender: FDA-Public Use
  Company Number: NZ-GUERBET LLC-1041632

PATIENT
  Age: 40 Year
  Sex: Female

DRUGS (1)
  1. HEXABRIX [Suspect]
     Active Substance: IOXAGLATE MEGLUMINE\IOXAGLATE SODIUM

REACTIONS (4)
  - Urticaria [Unknown]
  - Pruritus [Unknown]
  - Sneezing [Unknown]
  - Confusional state [Unknown]
